FAERS Safety Report 9553839 (Version 1)
Quarter: 2013Q3

REPORT INFORMATION
  Report Type: Spontaneous
  Country: GB (occurrence: GB)
  Receive Date: 20130925
  Receipt Date: 20130925
  Transmission Date: 20140515
  Serious: Yes (Other)
  Sender: FDA-Public Use
  Company Number: GB-ACTAVISPR-2013-16723

PATIENT
  Sex: Male

DRUGS (3)
  1. DIAZEPAM [Suspect]
     Indication: SELF-MEDICATION
     Dosage: UNK
     Route: 065
  2. DIAZEPAM [Suspect]
     Indication: ANXIETY
  3. DIAZEPAM [Suspect]
     Indication: AGORAPHOBIA

REACTIONS (4)
  - Drug abuse [Unknown]
  - Drug dependence [Unknown]
  - Self-medication [Unknown]
  - Suspected counterfeit product [Unknown]
